FAERS Safety Report 16738036 (Version 10)
Quarter: 2025Q1

REPORT INFORMATION
  Report Type: Spontaneous
  Country: SK (occurrence: SK)
  Receive Date: 20190824
  Receipt Date: 20250129
  Transmission Date: 20250408
  Serious: Yes (Death, Hospitalization, Other)
  Sender: NOVARTIS
  Company Number: PHHY2019SK195615

PATIENT
  Age: 57 Year
  Sex: Male

DRUGS (17)
  1. CYCLOSPORINE [Suspect]
     Active Substance: CYCLOSPORINE
     Indication: Systemic lupus erythematosus
     Route: 065
     Dates: start: 2002
  2. METHOTREXATE [Suspect]
     Active Substance: METHOTREXATE
     Indication: Systemic lupus erythematosus
     Route: 065
     Dates: start: 2002
  3. MYCOPHENOLATE MOFETIL [Suspect]
     Active Substance: MYCOPHENOLATE MOFETIL
     Indication: Systemic lupus erythematosus
     Route: 065
     Dates: start: 2002
  4. MYCOPHENOLATE MOFETIL [Suspect]
     Active Substance: MYCOPHENOLATE MOFETIL
     Route: 065
     Dates: start: 201504
  5. MYCOPHENOLATE MOFETIL [Suspect]
     Active Substance: MYCOPHENOLATE MOFETIL
     Route: 048
     Dates: start: 2010
  6. AZATHIOPRINE [Suspect]
     Active Substance: AZATHIOPRINE
     Indication: Systemic lupus erythematosus
     Route: 065
     Dates: start: 2002
  7. PREDNISONE [Suspect]
     Active Substance: PREDNISONE
     Indication: Systemic lupus erythematosus
     Route: 065
     Dates: start: 2002
  8. PREDNISONE [Suspect]
     Active Substance: PREDNISONE
     Route: 065
     Dates: start: 201504
  9. PREDNISONE [Suspect]
     Active Substance: PREDNISONE
     Route: 065
     Dates: start: 2013, end: 2014
  10. PREDNISONE [Suspect]
     Active Substance: PREDNISONE
     Dosage: 12.5 MG, QD
     Route: 065
     Dates: start: 2014
  11. PLAQUENIL [Suspect]
     Active Substance: HYDROXYCHLOROQUINE SULFATE
     Indication: Systemic lupus erythematosus
     Route: 065
     Dates: start: 2002
  12. BENLYSTA [Suspect]
     Active Substance: BELIMUMAB
     Indication: Systemic lupus erythematosus
     Dosage: 840 MG, Q4W
     Route: 042
     Dates: start: 20140401
  13. BENLYSTA [Suspect]
     Active Substance: BELIMUMAB
     Route: 065
     Dates: start: 201504
  14. CYCLOPHOSPHAMIDE [Suspect]
     Active Substance: CYCLOPHOSPHAMIDE
     Indication: Systemic lupus erythematosus
     Route: 065
     Dates: start: 2002
  15. CELLCEPT [Suspect]
     Active Substance: MYCOPHENOLATE MOFETIL
     Indication: Systemic lupus erythematosus
     Dosage: UNK, QD
     Route: 048
     Dates: start: 2010
  16. HYDROXYCHLOROQUINE SULFATE [Suspect]
     Active Substance: HYDROXYCHLOROQUINE SULFATE
     Indication: Systemic lupus erythematosus
     Route: 065
     Dates: start: 2002
  17. BELIMUMAB [Suspect]
     Active Substance: BELIMUMAB
     Indication: Systemic lupus erythematosus
     Route: 042
     Dates: start: 20140401, end: 20151103

REACTIONS (25)
  - Progressive multifocal leukoencephalopathy [Fatal]
  - Speech disorder [Fatal]
  - Dizziness [Fatal]
  - Mental impairment [Fatal]
  - Cardiac arrest [Fatal]
  - Hypotension [Fatal]
  - Arrhythmia [Fatal]
  - Respiratory failure [Fatal]
  - Pneumonia [Fatal]
  - Bulbar palsy [Fatal]
  - Cerebral infarction [Fatal]
  - Brain stem syndrome [Fatal]
  - CD4 lymphocytes decreased [Fatal]
  - Lymphopenia [Fatal]
  - Limb discomfort [Fatal]
  - Mental disorder [Fatal]
  - Magnetic resonance imaging head abnormal [Fatal]
  - JC virus infection [Not Recovered/Not Resolved]
  - Tremor [Not Recovered/Not Resolved]
  - Product use in unapproved indication [Unknown]
  - Quadriparesis [Not Recovered/Not Resolved]
  - Hemiparesis [Not Recovered/Not Resolved]
  - Cerebrovascular accident [Not Recovered/Not Resolved]
  - Dysarthria [Not Recovered/Not Resolved]
  - Intentional product use issue [Unknown]

NARRATIVE: CASE EVENT DATE: 20151101
